FAERS Safety Report 25616109 (Version 3)
Quarter: 2025Q3

REPORT INFORMATION
  Report Type: Spontaneous
  Country: EU (occurrence: EU)
  Receive Date: 20250729
  Receipt Date: 20250805
  Transmission Date: 20251020
  Serious: Yes (Other)
  Sender: SANOFI AVENTIS
  Company Number: EU-MLMSERVICE-20250717-PI582626-00249-1

PATIENT
  Age: 77 Year
  Sex: Female

DRUGS (19)
  1. OXALIPLATIN [Suspect]
     Active Substance: OXALIPLATIN
     Indication: Adenocarcinoma of colon
  2. OXALIPLATIN [Suspect]
     Active Substance: OXALIPLATIN
     Indication: Metastases to liver
  3. OXALIPLATIN [Suspect]
     Active Substance: OXALIPLATIN
     Dosage: 20 ML, QH, ACCUMULATED TIME: 60
  4. OXALIPLATIN [Suspect]
     Active Substance: OXALIPLATIN
     Dosage: 30 ML, QH, ACCUMULATED TIME: 120
  5. OXALIPLATIN [Suspect]
     Active Substance: OXALIPLATIN
     Dosage: 40 ML, QH, ACCUMULATED TIME: 240
  6. OXALIPLATIN [Suspect]
     Active Substance: OXALIPLATIN
     Dosage: 47 ML, QH, ACCUMULATED TIME: 393
  7. OXALIPLATIN [Suspect]
     Active Substance: OXALIPLATIN
  8. CAPECITABINE [Concomitant]
     Active Substance: CAPECITABINE
     Indication: Adenocarcinoma of colon
  9. CAPECITABINE [Concomitant]
     Active Substance: CAPECITABINE
     Indication: Metastases to liver
  10. BEVACIZUMAB [Concomitant]
     Active Substance: BEVACIZUMAB
     Indication: Adenocarcinoma of colon
  11. BEVACIZUMAB [Concomitant]
     Active Substance: BEVACIZUMAB
     Indication: Metastases to liver
  12. GRANISETRON [Concomitant]
     Active Substance: GRANISETRON
     Indication: Adenocarcinoma of colon
     Route: 042
  13. GRANISETRON [Concomitant]
     Active Substance: GRANISETRON
     Indication: Metastases to liver
     Route: 042
  14. GRANISETRON [Concomitant]
     Active Substance: GRANISETRON
     Indication: Premedication
  15. DEXAMETHASONE [Concomitant]
     Active Substance: DEXAMETHASONE
     Indication: Adenocarcinoma of colon
     Route: 042
  16. DEXAMETHASONE [Concomitant]
     Active Substance: DEXAMETHASONE
     Indication: Premedication
  17. DEXAMETHASONE [Concomitant]
     Active Substance: DEXAMETHASONE
     Indication: Metastases to liver
     Route: 042
  18. DEXTROSE [Concomitant]
     Active Substance: DEXTROSE MONOHYDRATE
     Indication: Adenocarcinoma of colon
  19. DEXTROSE [Concomitant]
     Active Substance: DEXTROSE MONOHYDRATE
     Indication: Metastases to liver

REACTIONS (9)
  - Cytokine release syndrome [Unknown]
  - Malaise [Unknown]
  - Vomiting [Unknown]
  - Dysaesthesia pharynx [Unknown]
  - Stridor [Unknown]
  - Dysphonia [Unknown]
  - Dyspnoea [Unknown]
  - Hypertension [Unknown]
  - Tachycardia [Unknown]
